FAERS Safety Report 21173828 (Version 1)
Quarter: 2022Q3

REPORT INFORMATION
  Report Type: Spontaneous
  Country: US (occurrence: US)
  Receive Date: 20220804
  Receipt Date: 20220804
  Transmission Date: 20221026
  Serious: No
  Sender: FDA-Public Use
  Company Number: US-PERRIGO-22US006287

PATIENT
  Age: 44 Year
  Sex: Female
  Weight: 72.562 kg

DRUGS (2)
  1. LORATADINE [Suspect]
     Active Substance: LORATADINE
     Indication: Seasonal allergy
     Dosage: 10 MG, QD
     Route: 048
     Dates: start: 20220420, end: 20220420
  2. GABAPENTIN [Concomitant]
     Active Substance: GABAPENTIN
     Indication: Plantar fasciitis
     Dosage: UNK
     Route: 065
     Dates: start: 20220406

REACTIONS (2)
  - Drug ineffective [Unknown]
  - Expired product administered [Recovered/Resolved]

NARRATIVE: CASE EVENT DATE: 20220420
